FAERS Safety Report 13257197 (Version 5)
Quarter: 2018Q1

REPORT INFORMATION
  Report Type: Spontaneous
  Country: US (occurrence: US)
  Receive Date: 20170221
  Receipt Date: 20180116
  Transmission Date: 20180508
  Serious: Yes (Other)
  Sender: FDA-Public Use
  Company Number: US-PFIZER INC-2017074835

PATIENT
  Age: 65 Year
  Sex: Female
  Weight: 95.71 kg

DRUGS (13)
  1. NITROFURANTOIN MCR [Concomitant]
     Active Substance: NITROFURANTOIN
     Indication: PROPHYLAXIS
     Dosage: 50 MG, DAILY
     Route: 048
  2. HYDROCODONE BITARTRATE AND ACETAMINOPHEN [Concomitant]
     Active Substance: ACETAMINOPHEN\HYDROCODONE BITARTRATE
     Indication: PAIN
     Dosage: 1 TABLET (7.5/325) TWICE DAILY AS NEEDED
     Route: 048
  3. LYRICA [Suspect]
     Active Substance: PREGABALIN
     Indication: FIBROMYALGIA
     Dosage: 150 MG, 3X/DAY
     Route: 048
     Dates: start: 2015
  4. MONTELUKAST SODIUM. [Concomitant]
     Active Substance: MONTELUKAST SODIUM
     Indication: HYPERSENSITIVITY
     Dosage: 10 MG, 1X/DAY
     Route: 048
  5. LEVOTHYROXINE. [Concomitant]
     Active Substance: LEVOTHYROXINE
     Indication: THYROID DISORDER
     Dosage: 25 UG, 1X/DAY
     Route: 048
  6. DILTIAZEM. [Concomitant]
     Active Substance: DILTIAZEM
     Indication: BLOOD PRESSURE ABNORMAL
     Dosage: 180 MG, 1X/DAY
     Route: 048
  7. REMERON [Concomitant]
     Active Substance: MIRTAZAPINE
     Dosage: UNK
  8. LYRICA [Suspect]
     Active Substance: PREGABALIN
     Indication: DIABETIC NEUROPATHY
     Dosage: 50 MG, 3X/DAY
     Route: 048
  9. PAROXETINE HYDROCHLORIDE. [Concomitant]
     Active Substance: PAROXETINE HYDROCHLORIDE
     Indication: DEPRESSION
     Dosage: 20 MG, 1X/DAY
     Route: 048
  10. VENTOLIN HFA [Concomitant]
     Active Substance: ALBUTEROL SULFATE
     Indication: ASTHMA
     Dosage: 1 PUFF EVERY 8 HOURS
     Route: 048
  11. LYRICA [Suspect]
     Active Substance: PREGABALIN
     Indication: BACK PAIN
     Dosage: 150 MG, 3X/DAY
     Route: 048
  12. MONTELUKAST SODIUM. [Concomitant]
     Active Substance: MONTELUKAST SODIUM
     Indication: ASTHMA
  13. TIZANIDINE HYDROCHLORIDE. [Concomitant]
     Active Substance: TIZANIDINE HYDROCHLORIDE
     Indication: MUSCLE SPASMS
     Dosage: 2MG EVERY 8 HOURS
     Route: 048

REACTIONS (13)
  - Oedema peripheral [Recovered/Resolved]
  - Oxygen saturation decreased [Unknown]
  - Drug effect incomplete [Unknown]
  - Pain [Unknown]
  - Pneumonia [Recovering/Resolving]
  - Cardiac failure congestive [Unknown]
  - Drug dependence [Unknown]
  - Intentional product misuse [Unknown]
  - Prescribed overdose [Unknown]
  - Bronchitis [Unknown]
  - Gingival disorder [Recovered/Resolved with Sequelae]
  - Condition aggravated [Unknown]
  - Malaise [Unknown]

NARRATIVE: CASE EVENT DATE: 201702
